FAERS Safety Report 10621691 (Version 1)
Quarter: 2014Q4

REPORT INFORMATION
  Report Type: Spontaneous
  Country: BE (occurrence: BE)
  Receive Date: 20141203
  Receipt Date: 20141203
  Transmission Date: 20150529
  Serious: Yes (Hospitalization)
  Sender: FDA-Public Use
  Company Number: PHHY2014BE155088

PATIENT

DRUGS (3)
  1. EVEROLIMUS [Suspect]
     Active Substance: EVEROLIMUS
     Indication: PRODUCT USED FOR UNKNOWN INDICATION
     Dosage: 10 MG, UNK
     Route: 065
     Dates: start: 201211
  2. PHENPROCOUMON [Interacting]
     Active Substance: PHENPROCOUMON
     Route: 065
  3. EXEMESTANE. [Concomitant]
     Active Substance: EXEMESTANE
     Indication: PRODUCT USED FOR UNKNOWN INDICATION
     Route: 065
     Dates: start: 201211

REACTIONS (11)
  - Drug interaction [Unknown]
  - Dehydration [Unknown]
  - Weight decreased [Unknown]
  - Lethargy [Unknown]
  - Renal tubular necrosis [Unknown]
  - Hypotension [Unknown]
  - Oedema peripheral [Unknown]
  - Decreased appetite [Unknown]
  - Proteinuria [Unknown]
  - Blood creatinine increased [Unknown]
  - Diarrhoea [Unknown]
